FAERS Safety Report 16150756 (Version 1)
Quarter: 2019Q2

REPORT INFORMATION
  Report Type: Spontaneous
  Country: US (occurrence: US)
  Receive Date: 20190402
  Receipt Date: 20190402
  Transmission Date: 20190711
  Serious: No
  Sender: FDA-Public Use
  Company Number: US-SA-2019SA083362

PATIENT
  Sex: Male

DRUGS (2)
  1. OMALIZUMAB. [Concomitant]
     Active Substance: OMALIZUMAB
  2. DUPIXENT [Suspect]
     Active Substance: DUPILUMAB

REACTIONS (2)
  - Drug ineffective [Unknown]
  - Urticaria [Unknown]
